FAERS Safety Report 7861563-7 (Version None)
Quarter: 2011Q4

REPORT INFORMATION
  Report Type: 
  Country: None (occurrence: None)
  Receive Date: 20111027
  Receipt Date: 20111018
  Transmission Date: 20120403
  Serious: Yes (Other)
  Sender: FDA-Public Use
  Company Number: US-JNJFOC-20110811169

PATIENT
  Age: 74 Year
  Sex: Male
  Weight: 90.72 kg

DRUGS (1)
  1. XARELTO [Suspect]
     Indication: ILL-DEFINED DISORDER

REACTIONS (5)
  - OEDEMA PERIPHERAL [None]
  - ECCHYMOSIS [None]
  - PAIN IN EXTREMITY [None]
  - HAEMORRHAGE [None]
  - WOUND COMPLICATION [None]
